FAERS Safety Report 12099834 (Version 1)
Quarter: 2016Q1

REPORT INFORMATION
  Report Type: Spontaneous
  Country: US (occurrence: None)
  Receive Date: 20160219
  Receipt Date: 20160219
  Transmission Date: 20160526
  Serious: No
  Sender: FDA-Public Use
  Company Number: None

PATIENT

DRUGS (2)
  1. SODIUM CHLORIDE INJ 0.9% USP 500ML BBRAUN [Suspect]
     Active Substance: SODIUM CHLORIDE
  2. MANNITOL INJ, USP 500 ML BBRAUN [Suspect]
     Active Substance: MANNITOL

REACTIONS (1)
  - Product packaging confusion [None]

NARRATIVE: CASE EVENT DATE: 20151001
